FAERS Safety Report 6662985-2 (Version None)
Quarter: 2010Q1

REPORT INFORMATION
  Report Type: 
  Country: None (occurrence: None)
  Receive Date: 20100322
  Receipt Date: 20100310
  Transmission Date: 20100710
  Serious: No
  Sender: FDA-Public Use
  Company Number: 2010-00327

PATIENT
  Age: 22 Year
  Sex: Male
  Weight: 113.3993 kg

DRUGS (1)
  1. ZICAM COLD REMEDY ORAL MIST [Suspect]
     Dosage: TID, 5 DAYS; APX 5 DAYS AGO
     Dates: end: 20100310

REACTIONS (1)
  - AGEUSIA [None]
